FAERS Safety Report 23859289 (Version 1)
Quarter: 2024Q2

REPORT INFORMATION
  Report Type: Report from Study
  Country: US (occurrence: US)
  Receive Date: 20240515
  Receipt Date: 20240515
  Transmission Date: 20240716
  Serious: Yes (Other)
  Sender: FDA-Public Use
  Company Number: US-ABBVIE-5759507

PATIENT
  Sex: Male

DRUGS (1)
  1. RINVOQ [Suspect]
     Active Substance: UPADACITINIB
     Indication: Product used for unknown indication
     Route: 048
     Dates: start: 20201005

REACTIONS (3)
  - Exostosis [Unknown]
  - Arthralgia [Not Recovered/Not Resolved]
  - Bone pain [Not Recovered/Not Resolved]
